FAERS Safety Report 15905887 (Version 2)
Quarter: 2019Q2

REPORT INFORMATION
  Report Type: Spontaneous
  Country: IT (occurrence: IT)
  Receive Date: 20190204
  Receipt Date: 20190612
  Transmission Date: 20190711
  Serious: Yes (Death)
  Sender: FDA-Public Use
  Company Number: IT-JNJFOC-20190202223

PATIENT
  Age: 88 Year
  Sex: Female
  Weight: 70 kg

DRUGS (1)
  1. XARELTO [Suspect]
     Active Substance: RIVAROXABAN
     Indication: THROMBOSIS
     Route: 048

REACTIONS (3)
  - Peritoneal haemorrhage [Fatal]
  - Blood bilirubin increased [Fatal]
  - Liver function test increased [Fatal]

NARRATIVE: CASE EVENT DATE: 20190113
